FAERS Safety Report 5894609-6 (Version None)
Quarter: 2008Q3

REPORT INFORMATION
  Report Type: 
  Country: None (occurrence: None)
  Receive Date: 20080922
  Receipt Date: 20080910
  Transmission Date: 20090109
  Serious: Yes (Death)
  Sender: FDA-Public Use
  Company Number: MPS1-1000101

PATIENT
  Age: 34 Year
  Sex: Male

DRUGS (1)
  1. ALDURAZYME [Suspect]
     Indication: MUCOPOLYSACCHARIDOSIS I
     Dosage: 34.8 MG 1XW, INTRAVENOUS
     Route: 042
     Dates: start: 20030529, end: 20080815

REACTIONS (2)
  - ASPIRATION [None]
  - CARDIAC FAILURE [None]
